FAERS Safety Report 5472909-1 (Version None)
Quarter: 2007Q4

REPORT INFORMATION
  Report Type: 
  Country: None (occurrence: None)
  Receive Date: 20071001
  Receipt Date: 20070928
  Transmission Date: 20080405
  Serious: Yes (Hospitalization)
  Sender: FDA-Public Use
  Company Number: B0486881A

PATIENT
  Age: 0 Day

DRUGS (3)
  1. PAXIL [Suspect]
     Indication: DRUG USE FOR UNKNOWN INDICATION
     Dates: end: 20061201
  2. DEPAS [Concomitant]
     Indication: DRUG USE FOR UNKNOWN INDICATION
     Dates: start: 20061201
  3. DEPAS [Concomitant]

REACTIONS (3)
  - DRUG EXPOSURE DURING PREGNANCY [None]
  - HYPOTONIA NEONATAL [None]
  - RESPIRATORY FAILURE [None]
